FAERS Safety Report 21065777 (Version 1)
Quarter: 2022Q3

REPORT INFORMATION
  Report Type: Report from Study
  Country: FR (occurrence: None)
  Receive Date: 20220711
  Receipt Date: 20220711
  Transmission Date: 20221027
  Serious: Yes (Death, Other)
  Sender: FDA-Public Use
  Company Number: FR-Merck Healthcare KGaA-9334758

PATIENT
  Age: 22 Year
  Sex: Female

DRUGS (1)
  1. LEVOTHYROXINE [Suspect]
     Active Substance: LEVOTHYROXINE
     Indication: Hypothyroidism

REACTIONS (6)
  - Myocardial infarction [Fatal]
  - Cardiac failure [Unknown]
  - Palpitations [Unknown]
  - Dizziness [Unknown]
  - Mood swings [Unknown]
  - Hyperhidrosis [Unknown]

NARRATIVE: CASE EVENT DATE: 20171001
